FAERS Safety Report 21686047 (Version 6)
Quarter: 2024Q3

REPORT INFORMATION
  Report Type: Report from Study
  Country: DE (occurrence: DE)
  Receive Date: 20221206
  Receipt Date: 20240930
  Transmission Date: 20241016
  Serious: Yes (Other)
  Sender: ROCHE
  Company Number: DE-ROCHE-2714563

PATIENT
  Age: 37 Year
  Sex: Female

DRUGS (10)
  1. OCREVUS [Suspect]
     Active Substance: OCRELIZUMAB
     Indication: Relapsing-remitting multiple sclerosis
     Dosage: 600 MG?FREQUENCY: 207 DAYS
     Route: 042
     Dates: start: 20200202
  2. OCREVUS [Suspect]
     Active Substance: OCRELIZUMAB
     Indication: Secondary progressive multiple sclerosis
     Route: 042
     Dates: start: 20210322
  3. COMIRNATY (TOZINAMERAN) [Suspect]
     Active Substance: TOZINAMERAN
     Indication: COVID-19 prophylaxis
     Route: 065
  4. NALOXONE HYDROCHLORIDE\TILIDINE HYDROCHLORIDE [Concomitant]
     Active Substance: NALOXONE HYDROCHLORIDE\TILIDINE HYDROCHLORIDE
  5. PREGABALIN [Concomitant]
     Active Substance: PREGABALIN
     Dosage: 50 MG-0-100 MG
  6. DULOXETINE [Concomitant]
     Active Substance: DULOXETINE
  7. DULOXETINE [Concomitant]
     Active Substance: DULOXETINE
  8. IBUPROFEN [Concomitant]
     Active Substance: IBUPROFEN
     Dosage: 800 SLOW-RELEASE AS NEEDED
  9. NABIXIMOLS [Concomitant]
     Active Substance: NABIXIMOLS
     Dosage: 8 PUFFS/DAY
  10. FERROUS GLUCONATE [Concomitant]
     Active Substance: FERROUS GLUCONATE
     Route: 048

REACTIONS (15)
  - Pain [Recovered/Resolved]
  - Headache [Recovered/Resolved]
  - Nausea [Recovered/Resolved]
  - Dizziness [Recovered/Resolved]
  - Asthenia [Recovered/Resolved]
  - Nasopharyngitis [Recovered/Resolved]
  - COVID-19 [Recovered/Resolved]
  - Cough [Recovered/Resolved]
  - Fatigue [Recovering/Resolving]
  - Gait disturbance [Recovering/Resolving]
  - Asthma [Not Recovered/Not Resolved]
  - Trigeminal neuralgia [Recovered/Resolved]
  - Secondary progressive multiple sclerosis [Recovered/Resolved]
  - Fibromyalgia [Not Recovered/Not Resolved]
  - Ankylosing spondylitis [Not Recovered/Not Resolved]

NARRATIVE: CASE EVENT DATE: 20200922
